FAERS Safety Report 8312289-7 (Version None)
Quarter: 2012Q2

REPORT INFORMATION
  Report Type: 
  Country: None (occurrence: None)
  Receive Date: 20120425
  Receipt Date: 20120411
  Transmission Date: 20120825
  Serious: Yes (Hospitalization, Other)
  Sender: FDA-Public Use
  Company Number: TW-ROCHE-1045523

PATIENT
  Sex: Female

DRUGS (18)
  1. TENORMIN [Concomitant]
     Route: 048
  2. FOLIC ACID [Concomitant]
     Route: 048
     Dates: start: 20111203
  3. RECORMON [Suspect]
     Indication: NEPHROGENIC ANAEMIA
     Route: 058
     Dates: start: 20060530, end: 20110211
  4. RECORMON [Suspect]
     Route: 058
     Dates: start: 20111104, end: 20120106
  5. NESPO [Suspect]
     Indication: NEPHROGENIC ANAEMIA
     Route: 058
     Dates: start: 20110211, end: 20111007
  6. GLURENORM [Concomitant]
     Route: 048
  7. SIGMART [Concomitant]
     Route: 048
     Dates: start: 20110720
  8. FENOFIBRATE [Concomitant]
     Route: 048
     Dates: start: 20110603
  9. DILTIAZEM HCL [Concomitant]
     Route: 048
     Dates: start: 20110817, end: 20120305
  10. NESPO [Suspect]
     Dates: start: 20111104, end: 20120106
  11. DOXABEN [Concomitant]
     Route: 048
     Dates: start: 20111012
  12. RECORMON [Suspect]
     Route: 058
     Dates: start: 20110211, end: 20111007
  13. CAPHOSOL [Concomitant]
     Route: 048
  14. BC POWDERS [Concomitant]
     Route: 048
  15. PLENDIL [Concomitant]
     Route: 048
     Dates: start: 20120203
  16. DILTIAZEM HCL [Concomitant]
     Route: 048
     Dates: start: 20120320, end: 20120320
  17. MIRCERA [Suspect]
     Indication: NEPHROGENIC ANAEMIA
     Route: 058
     Dates: start: 20111007, end: 20111104
  18. PROPAFENONE HCL [Concomitant]

REACTIONS (2)
  - APLASIA PURE RED CELL [None]
  - HAEMORRHOIDAL HAEMORRHAGE [None]
